FAERS Safety Report 6314393-1 (Version None)
Quarter: 2009Q3

REPORT INFORMATION
  Report Type: 
  Country: None (occurrence: None)
  Receive Date: 20090817
  Receipt Date: 20090803
  Transmission Date: 20100115
  Serious: Yes (Hospitalization)
  Sender: FDA-Public Use
  Company Number: 2009AP003128

PATIENT
  Age: 60 Year
  Sex: Female

DRUGS (2)
  1. ALENDRONATE SODIUM [Suspect]
     Indication: OSTEOPOROSIS
     Dosage: UNKNOWN; PO; UNKNOWN
  2. PREDNISOLONE [Suspect]
     Dosage: 10 MG; UNKNOWN; PO; QD
     Route: 048

REACTIONS (3)
  - FEMUR FRACTURE [None]
  - OSTEOPOROSIS [None]
  - PATHOLOGICAL FRACTURE [None]
